FAERS Safety Report 18977541 (Version 1)
Quarter: 2021Q1

REPORT INFORMATION
  Report Type: Report from Study
  Country: US (occurrence: US)
  Receive Date: 20210306
  Receipt Date: 20210306
  Transmission Date: 20210420
  Serious: Yes (Other)
  Sender: FDA-Public Use
  Company Number: US-TEVA-2021-US-1886635

PATIENT
  Sex: Male

DRUGS (13)
  1. CIALIS [Concomitant]
     Active Substance: TADALAFIL
     Dosage: ONE HALF TO ONE TABLET BY MOUTH AS NEEDED
     Route: 048
  2. FLOMAX [Concomitant]
     Active Substance: TAMSULOSIN HYDROCHLORIDE
     Dosage: .4 MILLIGRAM DAILY;
     Route: 048
  3. GABAPENTIN. [Concomitant]
     Active Substance: GABAPENTIN
     Dosage: ONE CAPSULE BY MOUTH AS DIRECTED
     Route: 048
  4. AUSTEDO [Suspect]
     Active Substance: DEUTETRABENAZINE
     Indication: TARDIVE DYSKINESIA
     Dosage: 12 MILLIGRAM DAILY;
     Route: 065
  5. CITALOPRAM HYDROBROMIDE. [Concomitant]
     Active Substance: CITALOPRAM HYDROBROMIDE
     Route: 048
  6. VALIUM [Concomitant]
     Active Substance: DIAZEPAM
     Indication: ANXIETY
     Dosage: 15 MILLIGRAM DAILY;
     Route: 048
  7. NAPROXEN. [Concomitant]
     Active Substance: NAPROXEN
     Dosage: 1000 MILLIGRAM DAILY; ONE TABLET TWICE A DAY AS NEEDED
     Route: 048
  8. HYDROXYZINE HCL [Concomitant]
     Active Substance: HYDROXYZINE HYDROCHLORIDE
     Dosage: 25 MILLIGRAM DAILY; ONE TABLET BY MOUTH AT BEDTIME AS NEEDED
     Route: 048
  9. LAMOTRIGINE. [Concomitant]
     Active Substance: LAMOTRIGINE
     Dosage: 200 MILLIGRAM DAILY; ONE TABLET BY MOUTH AT BEDTIME
     Route: 048
  10. LISINOPRIL. [Concomitant]
     Active Substance: LISINOPRIL
     Indication: HYPERTENSION
     Dosage: 20 MILLIGRAM DAILY;
     Route: 048
  11. ATORVASTATIN CALCIUM 20 MG [Concomitant]
     Dosage: 20 MILLIGRAM DAILY; ONE TABLET BY MOUTH AT BEDTIME
     Route: 048
  12. BACLOFEN. [Concomitant]
     Active Substance: BACLOFEN
     Dosage: 30 MILLIGRAM DAILY;
     Route: 048
  13. PRILOSEC CAPSULE DELAYED RELEASE [Concomitant]
     Route: 048

REACTIONS (9)
  - Somnolence [Unknown]
  - Nasopharyngitis [Unknown]
  - Oropharyngeal pain [Unknown]
  - Restless legs syndrome [Unknown]
  - Throat tightness [Unknown]
  - Cough [Unknown]
  - Dyskinesia [Unknown]
  - Chest discomfort [Unknown]
  - Throat irritation [Unknown]
